FAERS Safety Report 6814664-6 (Version None)
Quarter: 2010Q3

REPORT INFORMATION
  Report Type: 
  Country: None (occurrence: None)
  Receive Date: 20100702
  Receipt Date: 20100622
  Transmission Date: 20110219
  Serious: Yes (Hospitalization, Other)
  Sender: FDA-Public Use
  Company Number: CA-JNJFOC-20100607373

PATIENT
  Sex: Male
  Weight: 81 kg

DRUGS (5)
  1. REMICADE [Suspect]
     Indication: CROHN'S DISEASE
     Route: 042
  2. MICARDIS [Concomitant]
  3. FOLIC ACID [Concomitant]
  4. DIPHENHYDRAMINE [Concomitant]
     Indication: PREMEDICATION
  5. ACETAMINOPHEN [Concomitant]

REACTIONS (5)
  - AORTIC VALVE DISEASE [None]
  - CARDIAC FAILURE CONGESTIVE [None]
  - CEREBROVASCULAR ACCIDENT [None]
  - LEFT VENTRICULAR DYSFUNCTION [None]
  - POST PROCEDURAL COMPLICATION [None]
